FAERS Safety Report 25758825 (Version 1)
Quarter: 2025Q3

REPORT INFORMATION
  Report Type: Spontaneous
  Country: US (occurrence: US)
  Receive Date: 20250904
  Receipt Date: 20250904
  Transmission Date: 20251020
  Serious: No
  Sender: BIOGEN
  Company Number: US-BIOGEN-2024BI01244980

PATIENT
  Sex: Female
  Weight: 41.9 kg

DRUGS (6)
  1. SKYCLARYS [Suspect]
     Active Substance: OMAVELOXOLONE
     Indication: Friedreich^s ataxia
     Dosage: 150 MILLIGRAM, QD
     Route: 050
     Dates: start: 20231126
  2. ASPIRIN [Concomitant]
     Active Substance: ASPIRIN
     Indication: Product used for unknown indication
     Route: 050
  3. ATENOLOL [Concomitant]
     Active Substance: ATENOLOL
     Indication: Product used for unknown indication
     Route: 050
  4. FLUTICASONE [Concomitant]
     Active Substance: FLUTICASONE
     Indication: Product used for unknown indication
     Dosage: 1 SPRAY NASAL DAILY
     Route: 050
  5. LEVALBUTEROL [Concomitant]
     Active Substance: LEVALBUTEROL
     Indication: Product used for unknown indication
     Dosage: 2 PUFF DAILY
     Route: 050
  6. DIETARY SUPPLEMENT\UBIDECARENONE [Concomitant]
     Active Substance: DIETARY SUPPLEMENT\UBIDECARENONE
     Indication: Product used for unknown indication
     Route: 050

REACTIONS (7)
  - Dysmenorrhoea [Unknown]
  - Heavy menstrual bleeding [Recovered/Resolved]
  - Abdominal pain upper [Recovered/Resolved]
  - Nausea [Recovered/Resolved]
  - Oropharyngeal pain [Recovered/Resolved]
  - Headache [Recovered/Resolved]
  - Product size issue [Unknown]

NARRATIVE: CASE EVENT DATE: 20230101
